FAERS Safety Report 25149693 (Version 1)
Quarter: 2025Q2

REPORT INFORMATION
  Report Type: Spontaneous
  Country: US (occurrence: US)
  Receive Date: 20250402
  Receipt Date: 20250402
  Transmission Date: 20250717
  Serious: No
  Sender: PFIZER
  Company Number: US-PFIZER INC-PV202500039158

PATIENT
  Age: 30 Year
  Sex: Male

DRUGS (2)
  1. NURTEC ODT [Suspect]
     Active Substance: RIMEGEPANT SULFATE
     Route: 048
     Dates: end: 202503
  2. CALCIUM/MAGNESIUM/VITAMIN D NOS/ZINC [Concomitant]

REACTIONS (3)
  - Dry mouth [Unknown]
  - Fatigue [Unknown]
  - Disturbance in attention [Unknown]
